FAERS Safety Report 5465915-4 (Version None)
Quarter: 2007Q3

REPORT INFORMATION
  Report Type: 
  Country: None (occurrence: None)
  Receive Date: 20070924
  Receipt Date: 20070913
  Transmission Date: 20080115
  Serious: Yes (Other)
  Sender: FDA-Public Use
  Company Number: FR-JNJFOC-20070904219

PATIENT
  Age: 63 Year
  Sex: Female

DRUGS (4)
  1. TOPALGIC [Suspect]
     Route: 048
  2. TOPALGIC [Suspect]
     Indication: PAIN
     Dosage: HAS BEEN TREATED FOR 2-3 YEARS
     Route: 048
  3. PREVISCAN [Interacting]
     Route: 048
  4. PREVISCAN [Interacting]
     Indication: DRUG USE FOR UNKNOWN INDICATION
     Route: 048

REACTIONS (3)
  - DRUG INTERACTION [None]
  - GINGIVAL BLEEDING [None]
  - INTERNATIONAL NORMALISED RATIO INCREASED [None]
